FAERS Safety Report 25891462 (Version 1)
Quarter: 2025Q4

REPORT INFORMATION
  Report Type: Spontaneous
  Country: CN (occurrence: CN)
  Receive Date: 20251007
  Receipt Date: 20251007
  Transmission Date: 20260117
  Serious: Yes (Other)
  Sender: FRESENIUS KABI
  Company Number: CN-FreseniusKabi-FK202513461

PATIENT
  Age: 69 Year
  Sex: Female
  Weight: 55 kg

DRUGS (5)
  1. INTRALIPID [Suspect]
     Active Substance: EGG PHOSPHOLIPIDS\GLYCERIN\SOYBEAN OIL
     Indication: Neoplasm malignant
     Dosage: FOA-INJECTION
     Route: 041
     Dates: start: 20250926, end: 20250926
  2. INTRALIPID [Suspect]
     Active Substance: EGG PHOSPHOLIPIDS\GLYCERIN\SOYBEAN OIL
     Indication: Nutritional supplementation
  3. AMINO ACIDS, SOURCE UNSPECIFIED [Suspect]
     Active Substance: AMINO ACIDS, SOURCE UNSPECIFIED
     Indication: Neoplasm malignant
     Dosage: FOA-INJECTION
     Route: 041
     Dates: start: 20250926, end: 20250926
  4. AMINO ACIDS, SOURCE UNSPECIFIED [Suspect]
     Active Substance: AMINO ACIDS, SOURCE UNSPECIFIED
     Indication: Nutritional supplementation
  5. concentrated sodium [Concomitant]
     Indication: Nutritional supplementation
     Dates: start: 20250926

REACTIONS (10)
  - Dyspnoea [Recovering/Resolving]
  - Tachypnoea [Unknown]
  - Hypoxia [Unknown]
  - Palpitations [Recovering/Resolving]
  - Dizziness [Unknown]
  - Blood pressure increased [Unknown]
  - Cough [Unknown]
  - Sputum retention [Recovering/Resolving]
  - Orthopnoea [Unknown]
  - Vomiting [Unknown]

NARRATIVE: CASE EVENT DATE: 20250926
